FAERS Safety Report 23793425 (Version 1)
Quarter: 2024Q2

REPORT INFORMATION
  Report Type: Spontaneous
  Country: ES (occurrence: ES)
  Receive Date: 20240429
  Receipt Date: 20240429
  Transmission Date: 20240715
  Serious: Yes (Other)
  Sender: FDA-Public Use
  Company Number: None

PATIENT
  Age: 74 Year
  Sex: Female
  Weight: 83 kg

DRUGS (9)
  1. ATROPINE SULFATE [Suspect]
     Active Substance: ATROPINE SULFATE
     Indication: Posterior capsule opacification
     Dosage: 1 DROP EVERY 12 HOURS
     Dates: start: 20240314
  2. BISOPROLOL FUMARATE [Concomitant]
     Active Substance: BISOPROLOL FUMARATE
     Dosage: 5 MG FILM-COATED TABLETS
  3. OMEPRAZOLE [Concomitant]
     Active Substance: OMEPRAZOLE
     Dosage: 40 MG 28 CAPSULES
  4. PREDNISONE [Concomitant]
     Active Substance: PREDNISONE
     Dosage: ALONGA 5 MG TABLETS
  5. ATORVASTATIN [Concomitant]
     Active Substance: ATORVASTATIN
     Dosage: STRENGTH: 20 MG TABLET
  6. ALLOPURINOL [Concomitant]
     Active Substance: ALLOPURINOL
     Dosage: 100 MG TABLET
  7. DOXAZOSIN MESYLATE [Concomitant]
     Active Substance: DOXAZOSIN MESYLATE
     Dosage: 4 MG MODIFIED RELEASE TABLETS, 28 TABLETS
  8. CALCIFEDIOL [Concomitant]
     Active Substance: CALCIFEDIOL
     Dosage: 0.266 MG ORAL SOLUTION, 10 ORAL AMPOULES OF 1.5 ML
  9. DILUTOL [Concomitant]

REACTIONS (1)
  - Bradycardia [Unknown]

NARRATIVE: CASE EVENT DATE: 20240316
